FAERS Safety Report 4873314-9 (Version None)
Quarter: 2006Q1

REPORT INFORMATION
  Report Type: 
  Country: None (occurrence: None)
  Receive Date: 20060105
  Receipt Date: 20051229
  Transmission Date: 20060701
  Serious: Yes (Hospitalization)
  Sender: FDA-Public Use
  Company Number: US-BRISTOL-MYERS SQUIBB COMPANY-13236435

PATIENT
  Age: 61 Year
  Sex: Male

DRUGS (7)
  1. EFAVIRENZ [Suspect]
     Indication: ACQUIRED IMMUNODEFICIENCY SYNDROME
  2. ATAZANAVIR [Suspect]
     Indication: ACQUIRED IMMUNODEFICIENCY SYNDROME
  3. TENOFOVIR [Suspect]
     Indication: ACQUIRED IMMUNODEFICIENCY SYNDROME
     Dosage: LOPINAVIR + RITONAVIR 400/100 TWICE DAILY
  4. LAMIVUDINE [Suspect]
     Indication: ACQUIRED IMMUNODEFICIENCY SYNDROME
  5. RITONAVIR [Suspect]
     Indication: ACQUIRED IMMUNODEFICIENCY SYNDROME
  6. FLUCONAZOLE [Concomitant]
  7. METFORMINE [Concomitant]

REACTIONS (1)
  - RENAL TUBULAR NECROSIS [None]
